FAERS Safety Report 16306223 (Version 1)
Quarter: 2019Q2

REPORT INFORMATION
  Report Type: Spontaneous
  Country: CZ (occurrence: CZ)
  Receive Date: 20190513
  Receipt Date: 20190513
  Transmission Date: 20190711
  Serious: Yes (Other)
  Sender: FDA-Public Use
  Company Number: CZ-MYLANLABS-2019M1044318

PATIENT
  Age: 48 Year
  Sex: Male
  Weight: 121 kg

DRUGS (5)
  1. METFORMIN [Suspect]
     Active Substance: METFORMIN HYDROCHLORIDE
     Indication: TYPE 2 DIABETES MELLITUS
     Dosage: 3000 MILLIGRAM, QD
     Route: 048
     Dates: start: 2016
  2. CYNT                               /00985301/ [Concomitant]
     Active Substance: MOXONIDINE
     Dosage: 1 DOSAGE FORM, QD
  3. LIPERTANCE [Concomitant]
     Dosage: 1 DOSAGE FORM, QD
  4. STACYL [Concomitant]
     Dosage: 1 DOSAGE FORM, QD
  5. CONCOR [Concomitant]
     Active Substance: BISOPROLOL FUMARATE
     Dosage: 2 DOSAGE FORM, QD
     Route: 065

REACTIONS (1)
  - Diabetes mellitus [Recovered/Resolved]
